FAERS Safety Report 14446887 (Version 10)
Quarter: 2020Q1

REPORT INFORMATION
  Report Type: Report from Study
  Country: GR (occurrence: GR)
  Receive Date: 20180126
  Receipt Date: 20200114
  Transmission Date: 20200409
  Serious: Yes (Hospitalization, Other)
  Sender: FDA-Public Use
  Company Number: GR-PFIZER INC-2018031605

PATIENT
  Sex: Female
  Weight: 130 kg

DRUGS (10)
  1. ERBITUX [Suspect]
     Active Substance: CETUXIMAB
     Dosage: 250 MG/M2
     Route: 042
     Dates: start: 20160818, end: 20160915
  2. IRINOTECAN HCL [Suspect]
     Active Substance: IRINOTECAN HYDROCHLORIDE
     Indication: COLORECTAL CANCER METASTATIC
     Dosage: 150 MG/M2, UNK
     Route: 042
  3. IRINOTECAN HCL [Suspect]
     Active Substance: IRINOTECAN HYDROCHLORIDE
     Dosage: LESS THAN 150 MG/M2
     Route: 042
  4. ERBITUX [Suspect]
     Active Substance: CETUXIMAB
     Indication: COLORECTAL CANCER METASTATIC
     Dosage: 400 MG/M2, UNK
     Route: 042
     Dates: start: 20160818
  5. 5-FU /00098801/ [Suspect]
     Active Substance: FLUOROURACIL
     Indication: COLORECTAL CANCER METASTATIC
     Dosage: 400 MG/M2, UNK
     Route: 040
  6. FOLINIC ACID [Suspect]
     Active Substance: LEUCOVORIN
     Indication: COLORECTAL CANCER METASTATIC
     Dosage: 400 MG/M2, UNK
  7. FOLINIC ACID [Suspect]
     Active Substance: LEUCOVORIN
     Dosage: LESS THAN  400 MG/M2
  8. 5-FU /00098801/ [Suspect]
     Active Substance: FLUOROURACIL
     Dosage: 1800 MG/M2, UNK
     Route: 042
  9. ERBITUX [Suspect]
     Active Substance: CETUXIMAB
     Dosage: REDUCED DOSE (UNSPECIFIED)
     Route: 042
     Dates: start: 20160928
  10. 5-FU /00098801/ [Suspect]
     Active Substance: FLUOROURACIL
     Dosage: LESS THAN 400 MG/M2
     Route: 042

REACTIONS (6)
  - Anaemia [Not Recovered/Not Resolved]
  - Neutropenia [Recovered/Resolved with Sequelae]
  - Platelet count decreased [Recovered/Resolved with Sequelae]
  - Stomatitis [Not Recovered/Not Resolved]
  - Cheilitis [Not Recovered/Not Resolved]
  - Conjunctivitis [Recovered/Resolved with Sequelae]

NARRATIVE: CASE EVENT DATE: 20160922
